FAERS Safety Report 11070126 (Version 1)
Quarter: 2015Q2

REPORT INFORMATION
  Report Type: Spontaneous
  Country: DE (occurrence: DE)
  Receive Date: 20150427
  Receipt Date: 20150427
  Transmission Date: 20150821
  Serious: Yes (Hospitalization)
  Sender: FDA-Public Use
  Company Number: DE-TEVA-556387GER

PATIENT
  Age: 69 Year
  Sex: Female

DRUGS (13)
  1. BISOHEXAL [Concomitant]
     Active Substance: BISOPROLOL FUMARATE
     Route: 065
  2. ERGENYL CHRONO [Concomitant]
     Active Substance: VALPROIC ACID
     Dosage: DAILY DOSE: 600 MILLIGRAM
     Route: 065
     Dates: start: 20090507
  3. DIPIPERON [Concomitant]
     Active Substance: PIPAMPERONE
     Dosage: DAILY DOSE: 30 MILLIGRAM
     Route: 065
  4. RAMIPRIL. [Suspect]
     Active Substance: RAMIPRIL
     Dosage: DAILY DOSE: 2.5 MILLIGRAM
     Route: 065
     Dates: start: 20090428
  5. RAMIPRIL. [Interacting]
     Active Substance: RAMIPRIL
     Dosage: DAILY DOSE: 5 MILLIGRAM
     Route: 065
     Dates: start: 20090501
  6. ZYPREXA [Interacting]
     Active Substance: OLANZAPINE
     Dosage: SUBSEQUENTLY ADMINISTERED WITH 5MG
     Route: 065
  7. TREVILOR RETARD [Interacting]
     Active Substance: VENLAFAXINE HYDROCHLORIDE
     Route: 065
  8. L-THYROXIN [Concomitant]
     Active Substance: LEVOTHYROXINE SODIUM
     Dosage: DAILY DOSE: 75 MILLIGRAM
     Route: 065
  9. SIMVASTATIN-MEPHA [Concomitant]
     Dosage: DAILY DOSE: 40 MILLIGRAM
     Route: 065
  10. ERGENYL CHRONO [Concomitant]
     Active Substance: VALPROIC ACID
     Dosage: DAILY DOSE: 450 MILLIGRAM
     Route: 065
     Dates: start: 20090506
  11. NACL [Concomitant]
     Active Substance: SODIUM CHLORIDE
     Route: 065
  12. ERGENYL CHRONO [Concomitant]
     Active Substance: VALPROIC ACID
     Dosage: DAILY DOSE: 300 MILLIGRAM
     Route: 065
     Dates: start: 20090426
  13. ORFIRIL [Interacting]
     Active Substance: VALPROIC ACID
     Dosage: DAILY DOSE: 600 MILLIGRAM
     Route: 065

REACTIONS (2)
  - Drug interaction [Recovered/Resolved]
  - Hyponatraemia [Recovered/Resolved]

NARRATIVE: CASE EVENT DATE: 20090426
